FAERS Safety Report 5917046-4 (Version None)
Quarter: 2008Q4

REPORT INFORMATION
  Report Type: 
  Country: None (occurrence: None)
  Receive Date: 20081009
  Receipt Date: 20081009
  Transmission Date: 20090506
  Serious: Yes (Other)
  Sender: FDA-Public Use
  Company Number: None

PATIENT
  Age: 31 Year
  Sex: Female
  Weight: 48.9885 kg

DRUGS (1)
  1. YAZ 3MG DROSPIRENONE .002MG ETHINYL BERLEX [Suspect]
     Indication: ENDOMETRIOSIS
     Dosage: 1 TABLET  1 DAY  PO
     Route: 048
     Dates: start: 20080908, end: 20080921

REACTIONS (4)
  - DEAFNESS NEUROSENSORY [None]
  - DEAFNESS TRANSITORY [None]
  - HYPERACUSIS [None]
  - MENIERE'S DISEASE [None]
